FAERS Safety Report 9370509 (Version 1)
Quarter: 2013Q2

REPORT INFORMATION
  Report Type: Spontaneous
  Country: US (occurrence: US)
  Receive Date: 20130626
  Receipt Date: 20130626
  Transmission Date: 20140414
  Serious: Yes (Other)
  Sender: FDA-Public Use
  Company Number: US-AMGEN-USASP2013044691

PATIENT
  Age: 43 Year
  Sex: Female
  Weight: 154.65 kg

DRUGS (2)
  1. ENBREL [Suspect]
     Indication: PRODUCT USED FOR UNKNOWN INDICATION
     Dosage: 50 MG, QWK
     Route: 058
  2. LOSARTAN HCT [Concomitant]
     Dosage: 50-12.5
     Route: 048

REACTIONS (2)
  - Cellulitis [Unknown]
  - Psoriasis [Unknown]
